FAERS Safety Report 5666324 (Version 18)
Quarter: 2013Q3

REPORT INFORMATION
  Report Type: Spontaneous
  Country: US (occurrence: US)
  Receive Date: 20040920
  Receipt Date: 20130829
  Transmission Date: 20140515
  Serious: Yes (Hospitalization, Other)
  Sender: FDA-Public Use
  Company Number: PHEH2004US06622

PATIENT
  Age: 68 Year
  Sex: Female

DRUGS (19)
  1. AREDIA [Suspect]
     Dates: start: 20000307, end: 2002
  2. ZOMETA [Suspect]
     Indication: BREAST CANCER METASTATIC
     Dosage: 4 MG EVERY 4 WEEKS
     Route: 042
     Dates: start: 20020618
  3. AMARYL [Concomitant]
  4. PRINZIDE [Concomitant]
  5. AROMASIN [Concomitant]
     Indication: BREAST CANCER METASTATIC
     Dosage: 25 MG, QD
     Route: 048
     Dates: start: 200102
  6. XYLOCAIN GEL [Concomitant]
     Indication: LOCAL ANAESTHESIA
     Dates: start: 20040223, end: 20040223
  7. XYLOCAINE [Concomitant]
     Dates: start: 20040322, end: 20040322
  8. CALCIUM FOLINATE [Concomitant]
     Dates: start: 1994
  9. TAMOXIFEN [Concomitant]
  10. CARVEDIL [Concomitant]
  11. FLAGYL [Concomitant]
  12. PENICILLIN [Concomitant]
  13. NOTUSS [Concomitant]
  14. HYDROCODONE [Concomitant]
  15. NEURONTIN [Concomitant]
  16. LISINOPRIL [Concomitant]
  17. VERAPAMIL [Concomitant]
  18. COREG [Concomitant]
  19. ATIVAN [Concomitant]

REACTIONS (88)
  - Trigeminal neuralgia [Unknown]
  - Seborrhoeic keratosis [Unknown]
  - Acrochordon [Unknown]
  - Actinic keratosis [Unknown]
  - Seborrhoeic dermatitis [Unknown]
  - Osteonecrosis of jaw [Not Recovered/Not Resolved]
  - Dental caries [Not Recovered/Not Resolved]
  - Biopsy [Unknown]
  - Impaired healing [Unknown]
  - Injury [Unknown]
  - Pain [Not Recovered/Not Resolved]
  - Anxiety [Unknown]
  - Anhedonia [Unknown]
  - Bone disorder [Unknown]
  - Alveolar osteitis [Unknown]
  - Pain in jaw [Not Recovered/Not Resolved]
  - Dry mouth [Unknown]
  - Gram stain positive [Unknown]
  - Urinary tract infection [Unknown]
  - Meningioma [Unknown]
  - Xanthogranuloma [Unknown]
  - Accelerated hypertension [Unknown]
  - Gastrooesophageal reflux disease [Unknown]
  - Hiatus hernia [Unknown]
  - Metastases to lung [Unknown]
  - Bladder disorder [Unknown]
  - Escherichia infection [Unknown]
  - Pleural effusion [Unknown]
  - Bronchitis [Unknown]
  - Deafness [Unknown]
  - Tachycardia [Unknown]
  - Uterine prolapse [Unknown]
  - Hyperlipidaemia [Unknown]
  - Pneumonia [Unknown]
  - Vocal cord paralysis [Unknown]
  - Splenic artery aneurysm [Unknown]
  - Renal aneurysm [Unknown]
  - Diverticulum intestinal [Unknown]
  - Bone pain [Unknown]
  - Arthralgia [Unknown]
  - Cardiac flutter [Recovering/Resolving]
  - Palpitations [Recovering/Resolving]
  - Viral infection [Unknown]
  - Chronic sinusitis [Unknown]
  - Vasomotor rhinitis [Unknown]
  - Breast calcifications [Unknown]
  - Carotid bruit [Unknown]
  - Oedema peripheral [Unknown]
  - Aphthous stomatitis [Unknown]
  - Oral candidiasis [Unknown]
  - Herpes zoster [Unknown]
  - Dyspnoea [Unknown]
  - Hypoaesthesia [Unknown]
  - Dysphonia [Unknown]
  - Dysuria [Unknown]
  - Pollakiuria [Unknown]
  - Haematuria [Unknown]
  - Neck pain [Unknown]
  - Immunosuppression [Unknown]
  - Depression [Unknown]
  - Hypoglycaemia [Unknown]
  - Fall [Unknown]
  - Vaginal discharge [Unknown]
  - Abdominal pain [Unknown]
  - Fatigue [Unknown]
  - Diabetic neuropathy [Unknown]
  - Pneumothorax [Unknown]
  - Sinus congestion [Unknown]
  - Oropharyngeal pain [Unknown]
  - Erythema [Unknown]
  - Otitis media [Unknown]
  - Ear pain [Unknown]
  - Wound [Unknown]
  - Thrombophlebitis superficial [Unknown]
  - Peripheral vascular disorder [Unknown]
  - Muscular weakness [Unknown]
  - Hypokalaemia [Unknown]
  - Cataract [Unknown]
  - Osteoarthritis [Unknown]
  - Anaemia [Unknown]
  - Pain in extremity [Unknown]
  - Metastases to bone [Not Recovered/Not Resolved]
  - Malignant neoplasm progression [Unknown]
  - Onychomycosis [Unknown]
  - Cystitis [Unknown]
  - Suicidal ideation [Unknown]
  - Restless legs syndrome [Unknown]
  - Laceration [Unknown]
